FAERS Safety Report 6886425-3 (Version None)
Quarter: 2010Q3

REPORT INFORMATION
  Report Type: 
  Country: None (occurrence: None)
  Receive Date: 20100729
  Receipt Date: 20090506
  Transmission Date: 20110219
  Serious: Yes (Other)
  Sender: FDA-Public Use
  Company Number: US-PFIZER INC-2009197127

PATIENT
  Sex: Female
  Weight: 61.688 kg

DRUGS (8)
  1. CELEBREX [Suspect]
     Indication: ARTHRITIS
     Dosage: 200 MG, 1X/DAY
     Route: 048
  2. NEURONTIN [Concomitant]
     Dosage: UNK
  3. ACETYLSALICYLIC ACID [Concomitant]
     Dosage: 81 MG, UNK
  4. ZYRTEC [Concomitant]
     Dosage: UNK
  5. CADUET [Concomitant]
     Dosage: 10/40 MG
  6. WELLBUTRIN [Concomitant]
     Dosage: UNK
  7. ESTRACE [Concomitant]
     Dosage: UNK
  8. ESTRATEST [Concomitant]
     Dosage: UNK

REACTIONS (1)
  - LARGE INTESTINAL ULCER [None]
